FAERS Safety Report 25954839 (Version 2)
Quarter: 2025Q4

REPORT INFORMATION
  Report Type: Spontaneous
  Country: US (occurrence: US)
  Receive Date: 20251024
  Receipt Date: 20251120
  Transmission Date: 20260118
  Serious: Yes (Other)
  Sender: JAZZ
  Company Number: US-JAZZ PHARMACEUTICALS-2025-US-024267

PATIENT
  Age: 35 Year
  Sex: Female

DRUGS (2)
  1. XYWAV [Suspect]
     Active Substance: CALCIUM OXYBATE\MAGNESIUM OXYBATE\POTASSIUM OXYBATE\SODIUM OXYBATE
     Indication: Product used for unknown indication
  2. NALOXONE [Concomitant]
     Active Substance: NALOXONE

REACTIONS (5)
  - Depressed level of consciousness [Recovered/Resolved]
  - Diplopia [Recovered/Resolved]
  - Dizziness [Unknown]
  - Vertigo [Unknown]
  - Medication error [Recovered/Resolved]
